FAERS Safety Report 10109418 (Version 1)
Quarter: 2014Q2

REPORT INFORMATION
  Report Type: Spontaneous
  Country: US (occurrence: None)
  Receive Date: 20140421
  Receipt Date: 20140421
  Transmission Date: 20141212
  Serious: No
  Sender: FDA-Public Use
  Company Number: AEGR000287

PATIENT
  Age: 60 Year
  Sex: Female
  Weight: 74.4 kg

DRUGS (6)
  1. JUXTAPID [Suspect]
     Indication: PRODUCT USED FOR UNKNOWN INDICATION
     Route: 048
     Dates: start: 20130510
  2. TRAZODONE HCL (TRAZODONE HYDROCHLORIDE) [Concomitant]
  3. CELEXA (CITALOPRAM HYDROBROMIDE) [Concomitant]
  4. FOLIC ACID (FOLIC ACID) [Concomitant]
  5. DIPENTUM (OLSALAZINE SODIUM) [Concomitant]
  6. LOVAZA (OMEGA-3-ACID ETHYL ESTER) [Concomitant]

REACTIONS (2)
  - Product used for unknown indication [None]
  - Nausea [None]
